FAERS Safety Report 6344430-X (Version None)
Quarter: 2009Q3

REPORT INFORMATION
  Report Type: 
  Country: None (occurrence: None)
  Receive Date: 20090908
  Receipt Date: 20090831
  Transmission Date: 20100115
  Serious: Yes (Hospitalization, Other)
  Sender: FDA-Public Use
  Company Number: PHHY2009SE37034

PATIENT

DRUGS (10)
  1. TEGRETOL [Suspect]
     Dosage: 600MG DAILY
     Dates: start: 20080101
  2. FELODIPINE [Concomitant]
     Dosage: 5MG
  3. PAMOL [Concomitant]
     Dosage: 500MG
  4. APROVEL [Concomitant]
     Dosage: 300MG
  5. ZOPIKLON [Concomitant]
  6. OXASCAND [Concomitant]
     Dosage: 5MG
  7. LEVOTHYROXINE SODIUM [Concomitant]
     Dosage: 150UG
  8. VISCOTEARS [Concomitant]
  9. ESTRADIOL [Concomitant]
     Dosage: 1G
  10. ALFADIL [Concomitant]
     Dosage: 4MG

REACTIONS (12)
  - ASTHENIA [None]
  - CEREBROVASCULAR ACCIDENT [None]
  - EPILEPSY [None]
  - FACIAL PALSY [None]
  - FREQUENT BOWEL MOVEMENTS [None]
  - HYPERLIPIDAEMIA [None]
  - HYPOAESTHESIA [None]
  - HYPOTHYROIDISM [None]
  - PARAESTHESIA [None]
  - POLLAKIURIA [None]
  - SUBDURAL HAEMATOMA [None]
  - UNRESPONSIVE TO STIMULI [None]
